FAERS Safety Report 5126946-7 (Version None)
Quarter: 2006Q4

REPORT INFORMATION
  Report Type: 
  Country: None (occurrence: None)
  Receive Date: 20061013
  Receipt Date: 20060921
  Transmission Date: 20070319
  Serious: Yes (Life-Threatening, Disabling, Other)
  Sender: FDA-Public Use
  Company Number: 2006AP04480

PATIENT
  Age: 16939 Day
  Sex: Female

DRUGS (8)
  1. IRESSA [Suspect]
     Indication: NON-SMALL CELL LUNG CANCER STAGE IV
     Route: 048
     Dates: start: 20060628, end: 20060920
  2. IRESSA [Suspect]
     Indication: LUNG ADENOCARCINOMA
     Route: 048
     Dates: start: 20060628, end: 20060920
  3. GEMCITABINE [Concomitant]
     Dates: start: 20050203, end: 20050613
  4. CISPLATIN [Concomitant]
     Dates: start: 20050203, end: 20050607
  5. DOCETAXEL [Concomitant]
     Dates: start: 20050809, end: 20051123
  6. GLYBURIDE [Concomitant]
     Route: 048
     Dates: start: 20040101
  7. PERIDOPRIL [Concomitant]
     Route: 048
     Dates: start: 20040101
  8. PROTAPHANE [Concomitant]
     Route: 058
     Dates: start: 20060816

REACTIONS (2)
  - GINGIVAL BLEEDING [None]
  - MYELODYSPLASTIC SYNDROME [None]
